FAERS Safety Report 4676978-8 (Version None)
Quarter: 2005Q2

REPORT INFORMATION
  Report Type: 
  Country: None (occurrence: None)
  Receive Date: 20050526
  Receipt Date: 20050510
  Transmission Date: 20051028
  Serious: Yes (Death)
  Sender: FDA-Public Use
  Company Number: 2005PL000035

PATIENT
  Age: 45 Year
  Sex: Male

DRUGS (3)
  1. AZATHIOPRINE [Suspect]
     Indication: IMMUNOSUPPRESSION
  2. CYCLOSPORINE [Suspect]
  3. METHYLPREDNISOLONE [Concomitant]

REACTIONS (3)
  - DISEASE PROGRESSION [None]
  - KAPOSI'S SARCOMA [None]
  - THERAPY NON-RESPONDER [None]
